FAERS Safety Report 13015173 (Version 1)
Quarter: 2016Q4

REPORT INFORMATION
  Report Type: Spontaneous
  Country: US (occurrence: US)
  Receive Date: 20161211
  Receipt Date: 20161211
  Transmission Date: 20170207
  Serious: No
  Sender: FDA-Public Use
  Company Number: US-ELI_LILLY_AND_COMPANY-US201608012910

PATIENT
  Sex: Female
  Weight: 103 kg

DRUGS (8)
  1. CYMBALTA [Suspect]
     Active Substance: DULOXETINE HYDROCHLORIDE
     Dosage: 60 MG, QD
     Route: 065
     Dates: start: 200912
  2. CYMBALTA [Suspect]
     Active Substance: DULOXETINE HYDROCHLORIDE
     Indication: MYOFASCIAL PAIN SYNDROME
     Dosage: 30 MG, FOR SEVEN DAYS
     Route: 065
     Dates: start: 20090910, end: 20090916
  3. CYMBALTA [Suspect]
     Active Substance: DULOXETINE HYDROCHLORIDE
     Dosage: 30 MG, ONE WEEK
     Route: 065
     Dates: start: 200912
  4. CYMBALTA [Suspect]
     Active Substance: DULOXETINE HYDROCHLORIDE
     Dosage: 60 MG, QD
     Route: 065
     Dates: start: 201009, end: 20150402
  5. CYMBALTA [Suspect]
     Active Substance: DULOXETINE HYDROCHLORIDE
     Dosage: UNK
  6. BACLOFEN. [Concomitant]
     Active Substance: BACLOFEN
     Indication: PRODUCT USED FOR UNKNOWN INDICATION
     Dosage: 20 MG, QD
     Route: 065
  7. CYMBALTA [Suspect]
     Active Substance: DULOXETINE HYDROCHLORIDE
     Dosage: 30 MG, FOR SEVEN DAYS
     Route: 065
     Dates: start: 201009
  8. CYMBALTA [Suspect]
     Active Substance: DULOXETINE HYDROCHLORIDE
     Dosage: 30 MG, FOR SEVEN DAYS
     Route: 065
     Dates: end: 200910

REACTIONS (22)
  - Insomnia [Unknown]
  - Sensory disturbance [Unknown]
  - Photophobia [Unknown]
  - Vomiting [Unknown]
  - Agitation [Unknown]
  - Confusional state [Unknown]
  - Vertigo [Unknown]
  - Irritability [Unknown]
  - Tremor [Unknown]
  - Nervousness [Unknown]
  - Paraesthesia [Unknown]
  - Dysphoria [Unknown]
  - Pain [Unknown]
  - Dizziness [Unknown]
  - Nausea [Unknown]
  - Anxiety [Unknown]
  - Malaise [Unknown]
  - Mood altered [Unknown]
  - Fatigue [Unknown]
  - Drug withdrawal syndrome [Unknown]
  - Hyperhidrosis [Unknown]
  - Headache [Unknown]
